FAERS Safety Report 9576815 (Version 1)
Quarter: 2013Q4

REPORT INFORMATION
  Report Type: Spontaneous
  Country: US (occurrence: US)
  Receive Date: 20131001
  Receipt Date: 20131001
  Transmission Date: 20140711
  Serious: No
  Sender: FDA-Public Use
  Company Number: US-AMGEN-USASP2013004790

PATIENT
  Sex: Male
  Weight: 77.09 kg

DRUGS (9)
  1. ENBREL [Suspect]
     Indication: PSORIASIS
     Dosage: 50 MG, 2 TIMES/WK
     Route: 058
  2. LIPITOR [Concomitant]
     Dosage: 40 MG, UNK
  3. TRICOR                             /00090101/ [Concomitant]
     Dosage: 145 MG, UNK
  4. TRANDOLAPRIL [Concomitant]
     Dosage: 4 MG, UNK
  5. HYDROCHLOROTH [Concomitant]
     Dosage: 25 MG, UNK
  6. WARFARIN [Concomitant]
     Dosage: 4 MG, UNK
  7. PRESERVISION [Concomitant]
     Dosage: UNK
  8. LUTEIN                             /01638501/ [Concomitant]
     Dosage: UNK
  9. MULTIVITAMINS [Concomitant]
     Dosage: UNK

REACTIONS (1)
  - Influenza like illness [Unknown]
